FAERS Safety Report 11019598 (Version 2)
Quarter: 2015Q2

REPORT INFORMATION
  Report Type: Spontaneous
  Country: US (occurrence: US)
  Receive Date: 20150412
  Receipt Date: 20150525
  Transmission Date: 20150821
  Serious: No
  Sender: FDA-Public Use
  Company Number: US-JNJFOC-20150221229

PATIENT
  Sex: Female
  Weight: 52.16 kg

DRUGS (7)
  1. LEVAQUIN [Suspect]
     Active Substance: LEVOFLOXACIN
     Indication: INFECTION PROPHYLAXIS
     Route: 042
  2. LEVAQUIN [Suspect]
     Active Substance: LEVOFLOXACIN
     Indication: BRONCHITIS
     Route: 048
     Dates: start: 2014, end: 2014
  3. LEVAQUIN [Suspect]
     Active Substance: LEVOFLOXACIN
     Indication: BRONCHITIS
     Route: 048
  4. LEVAQUIN [Suspect]
     Active Substance: LEVOFLOXACIN
     Indication: BRONCHITIS
     Route: 048
  5. LESCOL (FLUVASTATIN SODIUM) [Concomitant]
     Indication: BLOOD CHOLESTEROL
     Route: 048
  6. LESCOL (FLUVASTATIN SODIUM) [Concomitant]
     Indication: BLOOD TRIGLYCERIDES
     Route: 048
  7. SYNTHROID [Concomitant]
     Active Substance: LEVOTHYROXINE SODIUM
     Indication: THYROID DISORDER
     Route: 048

REACTIONS (4)
  - Incorrect dose administered [Recovered/Resolved]
  - Wrong technique in drug usage process [Recovered/Resolved]
  - Bronchitis [Recovered/Resolved]
  - Abdominal discomfort [Recovered/Resolved]
